FAERS Safety Report 9739034 (Version 1)
Quarter: 2013Q4

REPORT INFORMATION
  Report Type: Report from Study
  Country: BR (occurrence: BR)
  Receive Date: 20131209
  Receipt Date: 20131209
  Transmission Date: 20140711
  Serious: Yes (Death, Other)
  Sender: FDA-Public Use
  Company Number: PHHY2013BR142175

PATIENT
  Sex: Female

DRUGS (1)
  1. EXELON PATCH [Suspect]
     Indication: DEMENTIA ALZHEIMER^S TYPE
     Dosage: 13.3 MG (27 MG (15 CM)), QD
     Route: 062

REACTIONS (6)
  - Urinary tract infection [Fatal]
  - Tracheal obstruction [Fatal]
  - Dyspnoea [Fatal]
  - Eating disorder [Fatal]
  - Hypersensitivity [Fatal]
  - Infection [Unknown]
